FAERS Safety Report 6663096-2 (Version None)
Quarter: 2010Q1

REPORT INFORMATION
  Report Type: 
  Country: None (occurrence: None)
  Receive Date: 20100323
  Receipt Date: 20091217
  Transmission Date: 20100710
  Serious: No
  Sender: FDA-Public Use
  Company Number: 091221-0001243

PATIENT
  Age: 8 Year
  Sex: Female

DRUGS (2)
  1. SABRIL [Suspect]
     Indication: EPILEPSY
  2. AUGMENTIN '125' [Concomitant]

REACTIONS (3)
  - AGITATION [None]
  - EAR INFECTION [None]
  - INSOMNIA [None]
